FAERS Safety Report 22123566 (Version 1)
Quarter: 2023Q1

REPORT INFORMATION
  Report Type: Report from Study
  Country: US (occurrence: US)
  Receive Date: 20230322
  Receipt Date: 20230322
  Transmission Date: 20230418
  Serious: Yes (Other)
  Sender: FDA-Public Use
  Company Number: US-SUN PHARMACEUTICAL INDUSTRIES LTD-2023R1-382164

PATIENT
  Sex: Female

DRUGS (5)
  1. TEMOZOLOMIDE [Suspect]
     Active Substance: TEMOZOLOMIDE
     Indication: Chemotherapy
     Dosage: 60 MILLIGRAM/SQ. METER, DAILY, DAYS 1-21
     Route: 065
  2. VALPROIC ACID [Suspect]
     Active Substance: VALPROIC ACID
     Indication: Chemotherapy
     Dosage: 15 MILLIGRAM/KILOGRAM
     Route: 065
  3. CELECOXIB [Suspect]
     Active Substance: CELECOXIB
     Indication: Chemotherapy
     Dosage: 250 MILLIGRAM/SQ. METER, DAILY
     Route: 065
  4. BEVACIZUMAB [Suspect]
     Active Substance: BEVACIZUMAB
     Indication: Chemotherapy
     Dosage: 5 MILLIGRAM/KILOGRAM, EVERY 3 WEEKS
     Route: 065
  5. CYCLOPHOSPHAMIDE [Suspect]
     Active Substance: CYCLOPHOSPHAMIDE
     Indication: Chemotherapy
     Dosage: 30.9 MILLIGRAM/SQ. METER, DAILY, DAYS 22-42
     Route: 065

REACTIONS (1)
  - Therapy partial responder [Unknown]
